FAERS Safety Report 5520215-9 (Version None)
Quarter: 2007Q4

REPORT INFORMATION
  Report Type: 
  Country: None (occurrence: None)
  Receive Date: 20071116
  Receipt Date: 20071108
  Transmission Date: 20080405
  Serious: Yes (Death, Other)
  Sender: FDA-Public Use
  Company Number: FR-ABBOTT-07P-056-0415542-00

PATIENT
  Sex: Female
  Weight: 3 kg

DRUGS (4)
  1. KALETRA [Suspect]
     Indication: DRUG EXPOSURE DURING PREGNANCY
     Route: 064
  2. LAMIVUDINE + ZIDOVUDINE [Suspect]
     Indication: DRUG EXPOSURE DURING PREGNANCY
     Route: 064
  3. ZIDOVUDINE [Suspect]
     Indication: DRUG USE FOR UNKNOWN INDICATION
     Dates: start: 20070704
  4. TPN [Concomitant]
     Indication: DRUG USE FOR UNKNOWN INDICATION
     Route: 042
     Dates: start: 20070705

REACTIONS (17)
  - ANOXIA [None]
  - BRADYCARDIA [None]
  - BRUXISM [None]
  - C-REACTIVE PROTEIN INCREASED [None]
  - CARDIAC HYPERTROPHY [None]
  - COMA [None]
  - ENCEPHALOPATHY [None]
  - FOETAL ARRHYTHMIA [None]
  - HEPATIC FUNCTION ABNORMAL [None]
  - HYPERLACTACIDAEMIA [None]
  - HYPONATRAEMIA [None]
  - MECONIUM IN AMNIOTIC FLUID [None]
  - MITOCHONDRIAL CYTOPATHY [None]
  - PULMONARY HYPERTENSION [None]
  - RESPIRATORY DISORDER [None]
  - STATUS EPILEPTICUS [None]
  - THROMBOCYTOPENIA [None]
